FAERS Safety Report 5912929-3 (Version None)
Quarter: 2008Q4

REPORT INFORMATION
  Report Type: 
  Country: None (occurrence: None)
  Receive Date: 20081006
  Receipt Date: 20080724
  Transmission Date: 20090506
  Serious: Yes (Disabling)
  Sender: FDA-Public Use
  Company Number: APP200800698

PATIENT
  Sex: Male

DRUGS (3)
  1. BUPIVACAINE [Suspect]
     Indication: MUSCULOSKELETAL PAIN
     Dosage: VIA PAIN PUMP, INTRA-ARTICULAR
     Route: 014
  2. BUPIVACAINE HYDROCHLORIDE W/EPINEPHRINE [Suspect]
     Indication: MUSCULOSKELETAL PAIN
     Dosage: VIA PAIN PUMP, INTRA-ARTICULAR
     Route: 014
  3. PAIN PUMP [Suspect]
     Indication: MUSCULOSKELETAL PAIN

REACTIONS (2)
  - CHONDROLYSIS [None]
  - MUSCULOSKELETAL PAIN [None]
